FAERS Safety Report 5670211-6 (Version None)
Quarter: 2008Q1

REPORT INFORMATION
  Report Type: 
  Country: None (occurrence: None)
  Receive Date: 20080317
  Receipt Date: 20080310
  Transmission Date: 20080703
  Serious: No
  Sender: FDA-Public Use
  Company Number: US-BAXTER-2008BH001916

PATIENT
  Age: 36 Year
  Sex: Female
  Weight: 69 kg

DRUGS (6)
  1. HEPARIN SODIUM [Suspect]
     Indication: AUTOIMMUNE DISORDER
     Route: 058
  2. PREDNISONE TAB [Concomitant]
     Indication: IMMUNE SYSTEM DISORDER
     Route: 048
  3. ASPIRIN [Concomitant]
     Indication: IMMUNE SYSTEM DISORDER
     Route: 048
  4. FOLIC ACID [Concomitant]
     Indication: PREGNANCY
     Route: 048
  5. CALCIUM [Concomitant]
     Indication: PREGNANCY
     Route: 048
  6. VITAMIN TAB [Concomitant]
     Indication: PREGNANCY
     Dosage: DOSE UNIT:UNKNOWN
     Route: 048

REACTIONS (4)
  - DIZZINESS [None]
  - DRUG EXPOSURE DURING PREGNANCY [None]
  - HEADACHE [None]
  - HEART RATE INCREASED [None]
